FAERS Safety Report 8909003 (Version 2)
Quarter: 2013Q1

REPORT INFORMATION
  Report Type: Spontaneous
  Country: US (occurrence: US)
  Receive Date: 20121114
  Receipt Date: 20130122
  Transmission Date: 20140127
  Serious: Yes (Other)
  Sender: FDA-Public Use
  Company Number: US-MILLENNIUM PHARMACEUTICALS, INC.-2012-07955

PATIENT
  Sex: 0

DRUGS (4)
  1. VELCADE [Suspect]
     Indication: AMYLOIDOSIS
     Dosage: 1.3 MG/M2, CYCLIC
  2. VELCADE [Suspect]
     Dosage: 1 MG/M2, CYCLIC
  3. DEXAMETHASONE [Suspect]
     Indication: AMYLOIDOSIS
     Dosage: 20 MG, CYCLIC
  4. MELPHALAN [Suspect]
     Indication: AMYLOIDOSIS
     Dosage: UNK

REACTIONS (1)
  - Graft versus host disease [Unknown]
